FAERS Safety Report 14252755 (Version 1)
Quarter: 2017Q4

REPORT INFORMATION
  Report Type: Spontaneous
  Country: JP (occurrence: JP)
  Receive Date: 20171205
  Receipt Date: 20171205
  Transmission Date: 20180321
  Serious: Yes (Other)
  Sender: FDA-Public Use
  Company Number: JP-BAYER-2017-232610

PATIENT

DRUGS (2)
  1. BAYASPIRIN 100 MG [Suspect]
     Active Substance: ASPIRIN
  2. MUCOSTA [Suspect]
     Active Substance: REBAMIPIDE
     Dosage: UNK
     Route: 048

REACTIONS (1)
  - Pancytopenia [Recovering/Resolving]
